FAERS Safety Report 5976413-3 (Version None)
Quarter: 2008Q4

REPORT INFORMATION
  Report Type: 
  Country: None (occurrence: None)
  Receive Date: 20081202
  Receipt Date: 20081118
  Transmission Date: 20090506
  Serious: Yes (Death)
  Sender: FDA-Public Use
  Company Number: BE-ELI_LILLY_AND_COMPANY-BE200808003398

PATIENT
  Sex: Male
  Weight: 80 kg

DRUGS (7)
  1. ZYPREXA [Suspect]
     Indication: PSYCHOTIC DISORDER
     Dosage: 10 MG, UNK
     Dates: start: 20080529, end: 20080101
  2. ZYPREXA [Suspect]
     Dosage: 20 MG, DAILY (1/D)
     Dates: start: 20080101, end: 20080101
  3. ZYPREXA [Suspect]
     Dosage: 40 MG, DAILY (1/D)
     Dates: start: 20080101
  4. XANAX [Concomitant]
     Indication: ANXIETY
     Dosage: 1 MG, DAILY (1/D)
     Dates: start: 20080508, end: 20080806
  5. SOLIAN [Concomitant]
     Indication: PSYCHOTIC DISORDER
     Dosage: 800 MG, DAILY (1/D)
     Dates: start: 20050101, end: 20080806
  6. KEMADRIN [Concomitant]
     Indication: DYSTONIA
     Dosage: 15 MG, DAILY (1/D)
     Dates: start: 20070101, end: 20080806
  7. VALIUM [Concomitant]
     Indication: DYSTONIA
     Dosage: 10 MG, DAILY (1/D)
     Route: 030
     Dates: start: 20080501, end: 20080806

REACTIONS (2)
  - DEATH [None]
  - OVERDOSE [None]
